FAERS Safety Report 5126654-2 (Version None)
Quarter: 2006Q4

REPORT INFORMATION
  Report Type: 
  Country: None (occurrence: None)
  Receive Date: 20061012
  Receipt Date: 20061012
  Transmission Date: 20070319
  Serious: Yes (Hospitalization)
  Sender: FDA-Public Use
  Company Number: None

PATIENT
  Age: 40 Year
  Sex: Male
  Weight: 46.7 kg

DRUGS (1)
  1. REMICADE [Suspect]
     Indication: CROHN'S DISEASE
     Dosage: 460 MG 460 MG QD INTRAVEN
     Route: 042
     Dates: start: 20060906, end: 20060906

REACTIONS (3)
  - DYSPNOEA [None]
  - FLUSHING [None]
  - VOMITING [None]
